FAERS Safety Report 6290301-7 (Version None)
Quarter: 2009Q3

REPORT INFORMATION
  Report Type: 
  Country: None (occurrence: None)
  Receive Date: 20090730
  Receipt Date: 20090211
  Transmission Date: 20100115
  Serious: No
  Sender: FDA-Public Use
  Company Number: US-BRISTOL-MYERS SQUIBB COMPANY-14506588

PATIENT
  Age: 53 Year
  Sex: Female

DRUGS (2)
  1. COUMADIN [Suspect]
  2. LANTUS [Suspect]
     Indication: TYPE 2 DIABETES MELLITUS
     Dosage: 1 DF = 42 U
     Route: 058
     Dates: start: 20090101

REACTIONS (1)
  - INJECTION SITE HAEMORRHAGE [None]
